FAERS Safety Report 8418988-0 (Version None)
Quarter: 2012Q2

REPORT INFORMATION
  Report Type: 
  Country: None (occurrence: None)
  Receive Date: 20120607
  Receipt Date: 20120601
  Transmission Date: 20120825
  Serious: Yes (Other)
  Sender: FDA-Public Use
  Company Number: PHHY2012CA047804

PATIENT
  Sex: Female

DRUGS (2)
  1. ZOMETA [Suspect]
     Indication: RENAL CELL CARCINOMA
     Dosage: 3.3 MG, EVERY 2 MONTHS
     Route: 042
     Dates: start: 20120110
  2. CHEMOTHERAPEUTICS [Concomitant]

REACTIONS (2)
  - SPEECH DISORDER [None]
  - MALAISE [None]
